FAERS Safety Report 21124446 (Version 2)
Quarter: 2022Q3

REPORT INFORMATION
  Report Type: Spontaneous
  Country: PL (occurrence: PL)
  Receive Date: 20220725
  Receipt Date: 20220929
  Transmission Date: 20221027
  Serious: Yes (Other)
  Sender: FDA-Public Use
  Company Number: PL-SUN PHARMACEUTICAL INDUSTRIES LTD-2022R1-345572

PATIENT
  Age: 64 Year
  Sex: Male

DRUGS (1)
  1. QUETIAPINE [Suspect]
     Active Substance: QUETIAPINE
     Indication: Hallucination, visual
     Dosage: 50 MILLIGRAM, DAILY IN THE MORNING AT LEAST 1 HOUR BEFORE BREAKFAST
     Route: 065

REACTIONS (2)
  - Aphasia [Recovered/Resolved]
  - Speech disorder [Recovered/Resolved]
